FAERS Safety Report 11685041 (Version 2)
Quarter: 2015Q4

REPORT INFORMATION
  Report Type: Spontaneous
  Country: US (occurrence: US)
  Receive Date: 20151030
  Receipt Date: 20151231
  Transmission Date: 20160304
  Serious: Yes (Hospitalization)
  Sender: FDA-Public Use
  Company Number: US-009507513-1510USA014108

PATIENT
  Age: 70 Year
  Sex: Male

DRUGS (28)
  1. MORPHINE SULFATE. [Suspect]
     Active Substance: MORPHINE SULFATE
  2. SOLARCAINE COOL ALOE [Suspect]
     Active Substance: LIDOCAINE HYDROCHLORIDE
  3. THALIDOMIDE [Suspect]
     Active Substance: THALIDOMIDE
  4. PAMIDRONATE DISODIUM. [Suspect]
     Active Substance: PAMIDRONATE DISODIUM
  5. HEXADROL [Suspect]
     Active Substance: DEXAMETHASONE
  6. OMEPRAZOLE. [Suspect]
     Active Substance: OMEPRAZOLE
  7. FLUCONAZOLE. [Suspect]
     Active Substance: FLUCONAZOLE
  8. MEROPENEM. [Suspect]
     Active Substance: MEROPENEM
  9. DIPHENHYDRAMINE HYDROCHLORIDE. [Suspect]
     Active Substance: DIPHENHYDRAMINE HYDROCHLORIDE
  10. CEFEPIME HYDROCHLORIDE. [Suspect]
     Active Substance: CEFEPIME HYDROCHLORIDE
  11. HEPARIN [Suspect]
     Active Substance: HEPARIN SODIUM
  12. MELOXICAM. [Suspect]
     Active Substance: MELOXICAM
  13. PROMETHAZINE HYDROCHLORIDE. [Suspect]
     Active Substance: PROMETHAZINE HYDROCHLORIDE
  14. DAPTOMYCIN. [Suspect]
     Active Substance: DAPTOMYCIN
  15. NEUPOGEN [Suspect]
     Active Substance: FILGRASTIM
  16. NALOXONE HYDROCHLORIDE. [Suspect]
     Active Substance: NALOXONE HYDROCHLORIDE
  17. ALPRAZOLAM. [Suspect]
     Active Substance: ALPRAZOLAM
  18. TOBRAMYCIN. [Suspect]
     Active Substance: TOBRAMYCIN
  19. HYDROCODONE [Suspect]
     Active Substance: HYDROCODONE
     Dosage: UNK
  20. VANCOMYCIN HYDROCHLORIDE. [Suspect]
     Active Substance: VANCOMYCIN HYDROCHLORIDE
  21. PANTOPRAZOLE SODIUM. [Suspect]
     Active Substance: PANTOPRAZOLE SODIUM
  22. CASPOFUNGIN ACETATE [Suspect]
     Active Substance: CASPOFUNGIN ACETATE
  23. RANITIDINE HYDROCHLORIDE. [Suspect]
     Active Substance: RANITIDINE HYDROCHLORIDE
  24. TESTOSTERONE ENANTHATE. [Suspect]
     Active Substance: TESTOSTERONE ENANTHATE
  25. POLYETHYLENE GLYCOL 3350. [Suspect]
     Active Substance: POLYETHYLENE GLYCOL 3350
     Indication: PRODUCT USED FOR UNKNOWN INDICATION
     Dosage: UNK
  26. ACETAMINOPHEN. [Suspect]
     Active Substance: ACETAMINOPHEN
  27. ZOLPIDEM TARTRATE. [Suspect]
     Active Substance: ZOLPIDEM TARTRATE
  28. AMIODARONE HYDROCHLORIDE. [Suspect]
     Active Substance: AMIODARONE HYDROCHLORIDE

REACTIONS (15)
  - Atrial fibrillation [Unknown]
  - Haematocrit decreased [Unknown]
  - Febrile neutropenia [Unknown]
  - Unresponsive to stimuli [Unknown]
  - Back pain [Unknown]
  - Oral candidiasis [Unknown]
  - Pseudomonas infection [Unknown]
  - White blood cell count decreased [Unknown]
  - Blood culture positive [Unknown]
  - Haemoglobin decreased [Unknown]
  - Streptococcal infection [Unknown]
  - Pustular psoriasis [Unknown]
  - Lethargy [Unknown]
  - Acute generalised exanthematous pustulosis [Unknown]
  - Oropharyngeal pain [Unknown]
